FAERS Safety Report 24062453 (Version 1)
Quarter: 2024Q3

REPORT INFORMATION
  Report Type: Report from Study
  Country: GB (occurrence: GB)
  Receive Date: 20240708
  Receipt Date: 20240708
  Transmission Date: 20241017
  Serious: Yes (Other)
  Sender: SANDOZ
  Company Number: GB-002147023-NVSC2020GB083338

PATIENT
  Sex: Female

DRUGS (1)
  1. HYRIMOZ [Suspect]
     Active Substance: ADALIMUMAB-ADAZ
     Indication: Rheumatoid arthritis
     Dosage: 40 MG, EOW (40 MG/0.4 ML)
     Route: 058

REACTIONS (8)
  - Limb discomfort [Unknown]
  - Illness [Unknown]
  - Malaise [Unknown]
  - Infection [Unknown]
  - Urinary tract infection [Unknown]
  - Disease recurrence [Unknown]
  - Post procedural infection [Unknown]
  - Product dose omission issue [Unknown]
